FAERS Safety Report 24278963 (Version 1)
Quarter: 2024Q3

REPORT INFORMATION
  Report Type: Spontaneous
  Country: US (occurrence: US)
  Receive Date: 20240903
  Receipt Date: 20240903
  Transmission Date: 20241017
  Serious: No
  Sender: PFIZER
  Company Number: US-PFIZER INC-202400246793

PATIENT
  Age: 58 Year
  Sex: Female
  Weight: 87.982 kg

DRUGS (2)
  1. INLYTA [Suspect]
     Active Substance: AXITINIB
     Dosage: 2 TABLETS EVERY 12 HOURS
     Dates: start: 20240821
  2. KEYTRUDA [Concomitant]
     Active Substance: PEMBROLIZUMAB
     Dosage: UNK

REACTIONS (8)
  - Asthenia [Unknown]
  - Fatigue [Unknown]
  - Hypertension [Unknown]
  - Dizziness postural [Unknown]
  - Infection [Unknown]
  - Urine odour abnormal [Unknown]
  - Decreased appetite [Unknown]
  - Blood glucose abnormal [Unknown]

NARRATIVE: CASE EVENT DATE: 20240801
